FAERS Safety Report 14479235 (Version 2)
Quarter: 2018Q1

REPORT INFORMATION
  Report Type: Spontaneous
  Country: JP (occurrence: JP)
  Receive Date: 20180202
  Receipt Date: 20180329
  Transmission Date: 20180509
  Serious: Yes (Other)
  Sender: FDA-Public Use
  Company Number: JP-ROCHE-2066507

PATIENT
  Age: 81 Year
  Sex: Male

DRUGS (1)
  1. LUCENTIS [Suspect]
     Active Substance: RANIBIZUMAB
     Indication: AGE-RELATED MACULAR DEGENERATION
     Dosage: UNK
     Route: 031
     Dates: end: 201712

REACTIONS (4)
  - Myelodysplastic syndrome [Unknown]
  - Age-related macular degeneration [Not Recovered/Not Resolved]
  - Asthenia [Unknown]
  - Blindness [Unknown]

NARRATIVE: CASE EVENT DATE: 201709
